FAERS Safety Report 4613546-8 (Version None)
Quarter: 2005Q1

REPORT INFORMATION
  Report Type: 
  Country: None (occurrence: None)
  Receive Date: 20050318
  Receipt Date: 20050318
  Transmission Date: 20050727
  Serious: Yes (Other)
  Sender: FDA-Public Use
  Company Number: None

PATIENT
  Age: 57 Year
  Sex: Male
  Weight: 139.1 kg

DRUGS (7)
  1. SIMVASTATIN [Suspect]
     Indication: HYPERLIPIDAEMIA
     Dosage: 40 MG PO @ BEDTIME
     Route: 048
     Dates: start: 20040226, end: 20041124
  2. METFORMIN [Concomitant]
  3. METOPROLOL TARTRATE [Concomitant]
  4. LISINOPRIL [Concomitant]
  5. OMEPRAZOLE [Concomitant]
  6. VENLAFOXINE [Concomitant]
  7. TRAZADONE [Concomitant]

REACTIONS (1)
  - GYNAECOMASTIA [None]
